FAERS Safety Report 6481816-7 (Version None)
Quarter: 2009Q4

REPORT INFORMATION
  Report Type: 
  Country: None (occurrence: None)
  Receive Date: 20091208
  Receipt Date: 20090326
  Transmission Date: 20100525
  Serious: No
  Sender: FDA-Public Use
  Company Number: US-AMGEN-KDL340390

PATIENT
  Sex: Male

DRUGS (2)
  1. ENBREL [Suspect]
     Indication: PSORIASIS
     Route: 058
     Dates: start: 20090223
  2. METHOTREXATE [Concomitant]
     Route: 048
     Dates: start: 20090323

REACTIONS (2)
  - DRUG INEFFECTIVE [None]
  - PSORIASIS [None]
